FAERS Safety Report 23644239 (Version 8)
Quarter: 2024Q2

REPORT INFORMATION
  Report Type: Spontaneous
  Country: US (occurrence: US)
  Receive Date: 20240318
  Receipt Date: 20240430
  Transmission Date: 20240715
  Serious: No
  Sender: FDA-Public Use
  Company Number: US-PFIZER INC-202400052308

PATIENT
  Age: 18 Year
  Sex: Male
  Weight: 61.23 kg

DRUGS (1)
  1. GENOTROPIN [Suspect]
     Active Substance: SOMATROPIN
     Indication: Growth hormone deficiency
     Dosage: INJECTS 1.2MG A DAY
     Dates: start: 202312

REACTIONS (4)
  - Drug dose omission by device [Unknown]
  - Incorrect dose administered by device [Unknown]
  - Device breakage [Unknown]
  - Device issue [Unknown]

NARRATIVE: CASE EVENT DATE: 20240201
